FAERS Safety Report 4298940-X (Version None)
Quarter: 2004Q1

REPORT INFORMATION
  Report Type: 
  Country: None (occurrence: None)
  Receive Date: 20040217
  Receipt Date: 20040203
  Transmission Date: 20041129
  Serious: Yes (Disabling, Congenital Anomaly)
  Sender: FDA-Public Use
  Company Number: 2004-00078FE

PATIENT
  Age: 33 Year
  Sex: Female

DRUGS (1)
  1. PENTASA [Suspect]
     Dosage: PER RECTAL
     Route: 054
     Dates: start: 19950615

REACTIONS (7)
  - ABORTION INDUCED [None]
  - COMPLICATIONS OF MATERNAL EXPOSURE TO THERAPEUTIC DRUGS [None]
  - HEART DISEASE CONGENITAL [None]
  - MATERNAL DRUGS AFFECTING FOETUS [None]
  - PREGNANCY [None]
  - PULMONARY ARTERY ATRESIA [None]
  - TRANSMISSION OF DRUG VIA SEMEN [None]
